FAERS Safety Report 25123521 (Version 1)
Quarter: 2025Q1

REPORT INFORMATION
  Report Type: Report from Study
  Country: US (occurrence: US)
  Receive Date: 20250326
  Receipt Date: 20250326
  Transmission Date: 20250409
  Serious: Yes (Other)
  Sender: ABBVIE
  Company Number: US-ABBVIE-6191947

PATIENT
  Age: 62 Year
  Sex: Male

DRUGS (1)
  1. RINVOQ [Suspect]
     Active Substance: UPADACITINIB
     Indication: Colitis ulcerative
     Route: 048
     Dates: start: 20230824

REACTIONS (6)
  - Sepsis [Recovered/Resolved]
  - Hyperkeratosis [Recovered/Resolved]
  - Blood blister [Recovered/Resolved]
  - Ankle fracture [Recovering/Resolving]
  - Loss of consciousness [Unknown]
  - Depressed mood [Recovering/Resolving]

NARRATIVE: CASE EVENT DATE: 20231001
